FAERS Safety Report 4965981-6 (Version None)
Quarter: 2006Q2

REPORT INFORMATION
  Report Type: 
  Country: None (occurrence: None)
  Receive Date: 20060403
  Receipt Date: 20060320
  Transmission Date: 20061013
  Serious: Yes (Other)
  Sender: FDA-Public Use
  Company Number: 2006P1000063

PATIENT
  Age: 48 Year
  Sex: Male
  Weight: 130 kg

DRUGS (4)
  1. RETEPLASE (RETEPLASE) [Suspect]
     Indication: ACUTE MYOCARDIAL INFARCTION
     Dosage: 5 IU; X1; IVB
     Route: 040
     Dates: start: 20051024, end: 20051024
  2. RETEPLASE (RETEPLASE) [Suspect]
  3. REOPRO [Suspect]
     Indication: ACUTE MYOCARDIAL INFARCTION
     Dosage: 16.2 ML' X1; IVB
     Route: 040
     Dates: start: 20051024, end: 20051024
  4. HEPARIN [Concomitant]

REACTIONS (6)
  - CARDIAC PROCEDURE COMPLICATION [None]
  - CORONARY ARTERY DISEASE [None]
  - INJURY [None]
  - INTRACARDIAC THROMBUS [None]
  - PUNCTURE SITE REACTION [None]
  - VASCULAR PSEUDOANEURYSM [None]
